FAERS Safety Report 4846797-8 (Version None)
Quarter: 2005Q4

REPORT INFORMATION
  Report Type: 
  Country: None (occurrence: None)
  Receive Date: 20051207
  Receipt Date: 20051124
  Transmission Date: 20060501
  Serious: Yes (Other)
  Sender: FDA-Public Use
  Company Number: PHBS2005ZA17302

PATIENT
  Sex: Female

DRUGS (5)
  1. ZELNORM [Suspect]
     Indication: CONSTIPATION
     Dosage: 6 MG, UNK
     Route: 048
  2. LAMICTAL [Concomitant]
  3. PHENYTOIN [Concomitant]
  4. EPILIM [Concomitant]
  5. TEGRETOL [Concomitant]
     Indication: EPILEPSY

REACTIONS (1)
  - EPILEPSY [None]
